FAERS Safety Report 25847218 (Version 1)
Quarter: 2025Q3

REPORT INFORMATION
  Report Type: Spontaneous
  Country: US (occurrence: US)
  Receive Date: 20250925
  Receipt Date: 20250925
  Transmission Date: 20251020
  Serious: Yes (Death)
  Sender: ARDELYX
  Company Number: US-ARDELYX-2025ARDX005214

PATIENT
  Sex: Female
  Weight: 42.6 kg

DRUGS (2)
  1. IBSRELA [Suspect]
     Active Substance: TENAPANOR HYDROCHLORIDE
     Indication: Irritable bowel syndrome
     Route: 065
     Dates: start: 202506
  2. IBSRELA [Suspect]
     Active Substance: TENAPANOR HYDROCHLORIDE
     Route: 048
     Dates: start: 202508, end: 20250916

REACTIONS (4)
  - Death [Fatal]
  - Diarrhoea [Unknown]
  - Abdominal distension [Unknown]
  - Flatulence [Unknown]

NARRATIVE: CASE EVENT DATE: 20250101
